FAERS Safety Report 6817301-X (Version None)
Quarter: 2010Q3

REPORT INFORMATION
  Report Type: 
  Country: None (occurrence: None)
  Receive Date: 20100706
  Receipt Date: 20100702
  Transmission Date: 20110219
  Serious: Yes (Death, Hospitalization)
  Sender: FDA-Public Use
  Company Number: MX-ROCHE-625578

PATIENT
  Sex: Male
  Weight: 77.5 kg

DRUGS (11)
  1. KETOROLAC TROMETHAMINE [Suspect]
     Indication: PRODUCT USED FOR UNKNOWN INDICATION
     Route: 065
     Dates: start: 20090318, end: 20090325
  2. METHOXY POLYETHYLENE GLYCOL-EPOETIN BETA [Suspect]
     Dosage: FORM: SYRINGE.
     Route: 058
     Dates: start: 20081107, end: 20090130
  3. METHOXY POLYETHYLENE GLYCOL-EPOETIN BETA [Suspect]
     Route: 058
     Dates: start: 20090130, end: 20090227
  4. METHOXY POLYETHYLENE GLYCOL-EPOETIN BETA [Suspect]
     Dosage: DATE OF LAST DOSE PRIOR TO SAE: 27 MARCH 2009
     Route: 058
     Dates: start: 20090227
  5. ACETAMINOPHEN [Suspect]
     Indication: PRODUCT USED FOR UNKNOWN INDICATION
     Route: 065
     Dates: start: 20090220
  6. VALSARTAN [Concomitant]
  7. ATORVASTATIN CALCIUM [Concomitant]
     Dates: start: 20020101
  8. CLOPIDOGREL [Concomitant]
     Dates: start: 20030101
  9. CALCITRIOL [Concomitant]
     Dates: start: 20020101
  10. NPH INSULIN [Concomitant]
     Dates: start: 20030101
  11. ESOMEPRAZOLE MAGNESIUM [Concomitant]
     Dates: start: 20090325

REACTIONS (2)
  - GASTRITIS EROSIVE [None]
  - SEPTIC SHOCK [None]
